FAERS Safety Report 6649983-X (Version None)
Quarter: 2010Q1

REPORT INFORMATION
  Report Type: 
  Country: None (occurrence: None)
  Receive Date: 20100324
  Receipt Date: 20100324
  Transmission Date: 20100710
  Serious: Yes (Other)
  Sender: FDA-Public Use
  Company Number: None

PATIENT
  Sex: Female
  Weight: 77.1115 kg

DRUGS (1)
  1. SPIRIVA [Suspect]
     Indication: CHRONIC OBSTRUCTIVE PULMONARY DISEASE
     Dosage: ONCE DAILY
     Dates: start: 20091231, end: 20100212

REACTIONS (8)
  - BLOOD GLUCOSE INCREASED [None]
  - EAR PAIN [None]
  - HEADACHE [None]
  - HYPOPHAGIA [None]
  - PAROSMIA [None]
  - RENAL IMPAIRMENT [None]
  - VISION BLURRED [None]
  - WEIGHT DECREASED [None]
